FAERS Safety Report 6234436-3 (Version None)
Quarter: 2009Q2

REPORT INFORMATION
  Report Type: 
  Country: None (occurrence: None)
  Receive Date: 20090618
  Receipt Date: 20090615
  Transmission Date: 20091009
  Serious: Yes (Other)
  Sender: FDA-Public Use
  Company Number: EG-ROCHE-637937

PATIENT
  Sex: Male
  Weight: 96.5 kg

DRUGS (2)
  1. PEG-INTERFERON ALFA 2A (RO 25-8310) [Suspect]
     Route: 065
     Dates: start: 20090129
  2. RIBAVIRIN [Suspect]
     Route: 065
     Dates: start: 20090129

REACTIONS (4)
  - ARTHRALGIA [None]
  - EPILEPSY [None]
  - FATIGUE [None]
  - HEADACHE [None]
